FAERS Safety Report 9416463 (Version 1)
Quarter: 2013Q3

REPORT INFORMATION
  Report Type: Report from Study
  Country: AR (occurrence: AR)
  Receive Date: 20130724
  Receipt Date: 20130724
  Transmission Date: 20140515
  Serious: Yes (Hospitalization)
  Sender: FDA-Public Use
  Company Number: PHHY2013AR078362

PATIENT
  Age: 83 Year
  Sex: Female

DRUGS (3)
  1. GALVUS MET [Suspect]
     Indication: DIABETES MELLITUS
     Dosage: 1 DF, (850 MG METFORMIN/ 50 MG VILDAGLIPTIN)
     Route: 048
     Dates: start: 2010
  2. DIOVAN [Suspect]
     Indication: HYPERTENSION
     Dosage: 80 MG, DAILY
     Route: 048
     Dates: start: 201208, end: 201307
  3. ASPIRIN [Concomitant]
     Dosage: 1 DF, DAILY

REACTIONS (2)
  - Arrhythmia [Recovering/Resolving]
  - Thrombosis [Recovering/Resolving]
